FAERS Safety Report 5594771-9 (Version None)
Quarter: 2008Q1

REPORT INFORMATION
  Report Type: 
  Country: None (occurrence: None)
  Receive Date: 20080117
  Receipt Date: 20080111
  Transmission Date: 20080703
  Serious: Yes (Death, Life-Threatening, Hospitalization, Disabling)
  Sender: FDA-Public Use
  Company Number: A0666084A

PATIENT
  Age: 84 Year
  Sex: Female

DRUGS (24)
  1. AVANDIA [Suspect]
     Dosage: 2MG IN THE MORNING
     Route: 048
  2. ASPIRIN [Concomitant]
     Dosage: 325MG PER DAY
     Route: 048
  3. HEART MEDICATION [Concomitant]
  4. PROPRANOLOL [Concomitant]
  5. TOPROL-XL [Concomitant]
     Dosage: 50MG PER DAY
     Route: 048
  6. CLONIDINE [Concomitant]
  7. CHLORTHALIDONE [Concomitant]
  8. BISACODYL [Concomitant]
     Dosage: 10MG AS REQUIRED
  9. CALCIUM + VITAMIN D [Concomitant]
     Dosage: 1TAB TWICE PER DAY
     Route: 048
  10. FORTICAL [Concomitant]
     Dosage: 1SPR PER DAY
     Route: 045
  11. HYDROCHLOROTHIAZIDE [Concomitant]
     Dosage: 25MG PER DAY
     Route: 048
  12. ACETAMINOPHEN AND HYDROCODONE BITARTRATE [Concomitant]
     Route: 048
  13. KEPPRA [Concomitant]
     Dosage: 500MG TWICE PER DAY
     Route: 048
  14. LEVOTHYROXINE SODIUM [Concomitant]
     Dosage: .075MG PER DAY
     Route: 048
  15. LEXAPRO [Concomitant]
     Dosage: 10MG PER DAY
     Route: 048
  16. LIDODERM [Concomitant]
     Dosage: 1PAT IN THE MORNING
     Route: 062
  17. LYRICA [Concomitant]
     Dosage: 75MG TWICE PER DAY
     Route: 048
  18. NEBULIZER [Concomitant]
  19. OXYGEN [Concomitant]
     Dosage: 2L CONTINUOUS
     Route: 055
  20. POTASSIUM CHLORIDE [Concomitant]
     Dosage: 10MEQ TWICE PER DAY
     Route: 048
  21. PRILOSEC [Concomitant]
     Dosage: 20MG PER DAY
     Route: 048
  22. ROBITUSSIN [Concomitant]
     Dosage: 2TSP AS REQUIRED
     Route: 048
  23. LAXATIVE [Concomitant]
     Dosage: 2TAB AT NIGHT
     Route: 048
  24. LIPITOR [Concomitant]
     Dosage: 20MG AT NIGHT
     Route: 048

REACTIONS (14)
  - ARTERIOSCLEROSIS [None]
  - BLOOD SODIUM DECREASED [None]
  - CEREBRAL INFARCTION [None]
  - CEREBROVASCULAR ACCIDENT [None]
  - CONVULSION [None]
  - DYSARTHRIA [None]
  - FACIAL PALSY [None]
  - HEMIPARESIS [None]
  - LACUNAR INFARCTION [None]
  - MALAISE [None]
  - MUSCULAR WEAKNESS [None]
  - MYOCARDIAL INFARCTION [None]
  - OEDEMA PERIPHERAL [None]
  - SUDDEN DEATH [None]
